FAERS Safety Report 5549563-3 (Version None)
Quarter: 2007Q4

REPORT INFORMATION
  Report Type: 
  Country: None (occurrence: None)
  Receive Date: 20071210
  Receipt Date: 20071127
  Transmission Date: 20080405
  Serious: Yes (Hospitalization)
  Sender: FDA-Public Use
  Company Number: 2007BI025190

PATIENT
  Age: 30 Year
  Sex: Female

DRUGS (1)
  1. NATALIZUMAB [Suspect]
     Indication: MULTIPLE SCLEROSIS
     Dosage: 300 MG; QM; IV
     Route: 042
     Dates: start: 20070215, end: 20070501

REACTIONS (8)
  - HAEMORRHAGE [None]
  - KIDNEY INFECTION [None]
  - MENINGITIS [None]
  - MULTIPLE SCLEROSIS [None]
  - NEPHROLITHIASIS [None]
  - NERVE INJURY [None]
  - PAIN [None]
  - URINARY TRACT INFECTION [None]
